FAERS Safety Report 20966599 (Version 1)
Quarter: 2022Q2

REPORT INFORMATION
  Report Type: Spontaneous
  Country: US (occurrence: None)
  Receive Date: 20220613
  Receipt Date: 20220613
  Transmission Date: 20220721
  Serious: Yes (Hospitalization, Disabling)
  Sender: FDA-Public Use
  Company Number: None

PATIENT
  Age: 78 Year
  Sex: Female
  Weight: 72.57 kg

DRUGS (2)
  1. DIETARY SUPPLEMENT [Suspect]
     Active Substance: DIETARY SUPPLEMENT
  2. DICLOFENAC [Suspect]
     Active Substance: DICLOFENAC

REACTIONS (3)
  - Internal haemorrhage [None]
  - Haemorrhage [None]
  - Product formulation issue [None]

NARRATIVE: CASE EVENT DATE: 20220104
